FAERS Safety Report 6550569-6 (Version None)
Quarter: 2010Q1

REPORT INFORMATION
  Report Type: 
  Country: None (occurrence: None)
  Receive Date: 20100125
  Receipt Date: 20100113
  Transmission Date: 20100710
  Serious: Yes (Hospitalization)
  Sender: FDA-Public Use
  Company Number: JP-ELI_LILLY_AND_COMPANY-JP200812000438

PATIENT
  Age: 70 Year
  Sex: Female
  Weight: 43.7 kg

DRUGS (2)
  1. HUMALOG [Suspect]
     Indication: TYPE 2 DIABETES MELLITUS
     Dosage: UNK, 3/D
     Route: 058
     Dates: start: 20071201
  2. GLYCYRRHIZIC ACID [Concomitant]
     Indication: HEPATIC CIRRHOSIS
     Dosage: UNK, 3/W
     Route: 042

REACTIONS (4)
  - ANAEMIA [None]
  - DIABETES MELLITUS INADEQUATE CONTROL [None]
  - HAEMORRHAGE SUBCUTANEOUS [None]
  - SUBCUTANEOUS HAEMATOMA [None]
